FAERS Safety Report 9734954 (Version 3)
Quarter: 2013Q4

REPORT INFORMATION
  Report Type: Spontaneous
  Country: US (occurrence: US)
  Receive Date: 20131206
  Receipt Date: 20131226
  Transmission Date: 20140711
  Serious: No
  Sender: FDA-Public Use
  Company Number: US-PFIZER INC-2013346586

PATIENT
  Age: 75 Year
  Sex: Female
  Weight: 81.63 kg

DRUGS (3)
  1. ARTHROTEC [Suspect]
     Indication: ARTHRITIS
     Dosage: 75 MG, UNK
     Route: 048
     Dates: end: 201309
  2. ARTHROTEC [Suspect]
     Indication: ARTHRITIS
     Dosage: UNK
     Dates: end: 2013
  3. LORAZEPAM [Concomitant]
     Dosage: UNK

REACTIONS (3)
  - Skin disorder [Unknown]
  - Psoriasis [Unknown]
  - Pruritus [Unknown]
